FAERS Safety Report 6891698-7 (Version None)
Quarter: 2010Q3

REPORT INFORMATION
  Report Type: 
  Country: None (occurrence: None)
  Receive Date: 20100731
  Receipt Date: 20070926
  Transmission Date: 20110219
  Serious: No
  Sender: FDA-Public Use
  Company Number: US-PFIZER INC-2007081284

PATIENT
  Sex: Female
  Weight: 63.5 kg

DRUGS (4)
  1. NEURONTIN [Suspect]
     Indication: NEURALGIA
     Dates: start: 20030601
  2. LYRICA [Suspect]
     Indication: NEURALGIA
     Route: 048
  3. ADDERALL 10 [Concomitant]
  4. ALLEGRA [Concomitant]

REACTIONS (4)
  - GASTROINTESTINAL DISORDER [None]
  - JOINT SWELLING [None]
  - PAIN [None]
  - RASH [None]
